FAERS Safety Report 11173874 (Version 1)
Quarter: 2015Q2

REPORT INFORMATION
  Report Type: Spontaneous
  Country: US (occurrence: US)
  Receive Date: 20150609
  Receipt Date: 20150609
  Transmission Date: 20150821
  Serious: Yes (Other)
  Sender: FDA-Public Use
  Company Number: US-DRREDDYS-USA/USA/14/0041087

PATIENT
  Age: 69 Year
  Sex: Male

DRUGS (11)
  1. PREDNISONE. [Suspect]
     Active Substance: PREDNISONE
     Indication: IMMUNOSUPPRESSION
     Route: 065
  2. SULFADIAZINE. [Suspect]
     Active Substance: SULFADIAZINE
     Indication: BALAMUTHIA INFECTION
     Route: 048
  3. ALBENDAZOLE [Suspect]
     Active Substance: ALBENDAZOLE
     Indication: BALAMUTHIA INFECTION
     Route: 048
  4. PENTAMIDINE [Suspect]
     Active Substance: PENTAMIDINE
     Indication: BALAMUTHIA INFECTION
     Route: 042
  5. ANTI-THYMOCYTE GLOBULIN (RABBIT) NOS [Suspect]
     Active Substance: LAPINE T-LYMPHOCYTE IMMUNE GLOBULIN
     Indication: COMPLICATIONS OF TRANSPLANTED KIDNEY
     Route: 065
  6. BASILIXIMAB [Suspect]
     Active Substance: BASILIXIMAB
     Indication: IMMUNOSUPPRESSION
     Route: 065
  7. AZITHROMYCIN [Suspect]
     Active Substance: AZITHROMYCIN ANHYDROUS
     Indication: BALAMUTHIA INFECTION
     Route: 048
  8. MILTEFOSINE [Suspect]
     Active Substance: MILTEFOSINE
     Indication: BALAMUTHIA INFECTION
     Route: 065
  9. TACROLIMUS. [Suspect]
     Active Substance: TACROLIMUS
     Indication: IMMUNOSUPPRESSION
     Route: 065
  10. MYCOPHENOLATE [Suspect]
     Active Substance: MYCOPHENOLIC ACID
     Indication: IMMUNOSUPPRESSION
     Route: 065
  11. FLUCONAZOLE. [Suspect]
     Active Substance: FLUCONAZOLE
     Indication: BALAMUTHIA INFECTION
     Route: 048

REACTIONS (3)
  - Diarrhoea [Recovered/Resolved]
  - Transaminases increased [Recovered/Resolved]
  - Balamuthia infection [Recovered/Resolved]
